FAERS Safety Report 24680844 (Version 3)
Quarter: 2025Q1

REPORT INFORMATION
  Report Type: Spontaneous
  Country: US (occurrence: US)
  Receive Date: 20241129
  Receipt Date: 20250113
  Transmission Date: 20250408
  Serious: No
  Sender: SANOFI AVENTIS
  Company Number: US-SANOFI-02307799

PATIENT
  Age: 66 Year
  Sex: Male

DRUGS (1)
  1. LANTUS SOLOSTAR [Suspect]
     Active Substance: INSULIN GLARGINE
     Indication: Diabetes mellitus
     Dosage: 32 IU, QD

REACTIONS (5)
  - Injection site bruising [Unknown]
  - Injection site injury [Unknown]
  - Blood glucose increased [Unknown]
  - Device issue [Unknown]
  - Intentional dose omission [Unknown]
